FAERS Safety Report 17648987 (Version 1)
Quarter: 2020Q2

REPORT INFORMATION
  Report Type: Spontaneous
  Country: US (occurrence: US)
  Receive Date: 20200408
  Receipt Date: 20200408
  Transmission Date: 20200713
  Serious: Yes (Hospitalization)
  Sender: FDA-Public Use
  Company Number: None

PATIENT
  Sex: Female

DRUGS (1)
  1. RYDAPT [Suspect]
     Active Substance: MIDOSTAURIN
     Indication: SYSTEMIC MASTOCYTOSIS
     Route: 048
     Dates: start: 20181114

REACTIONS (9)
  - Vomiting [None]
  - Productive cough [None]
  - Headache [None]
  - Oedema [None]
  - Diarrhoea [None]
  - Epistaxis [None]
  - Pyrexia [None]
  - Nausea [None]
  - Oral mucosal blistering [None]
